FAERS Safety Report 8537189 (Version 5)
Quarter: 2013Q2

REPORT INFORMATION
  Report Type: Report from Study
  Country: US (occurrence: US)
  Receive Date: 20120430
  Receipt Date: 20130430
  Transmission Date: 20140414
  Serious: Yes (Hospitalization)
  Sender: FDA-Public Use
  Company Number: US-ACTELION-A-US2011-45425

PATIENT
  Age: 68 Year
  Sex: Female
  Weight: 50.34 kg

DRUGS (18)
  1. TRACLEER [Suspect]
     Indication: PULMONARY ARTERIAL HYPERTENSION
     Dosage: UNK
     Route: 048
     Dates: start: 2008
  2. VELETRI [Suspect]
     Indication: PULMONARY ARTERIAL HYPERTENSION
     Dosage: 56 NG/KG, PER MIN
     Route: 042
     Dates: start: 20101210
  3. VELETRI [Suspect]
     Dosage: 71 NG/KG, PER MIN
     Route: 042
     Dates: start: 2011
  4. VELETRI [Suspect]
     Dosage: 85 NG/KG, PER MIN
     Route: 042
     Dates: start: 20110109
  5. ADCIRCA [Concomitant]
     Dosage: UNK
     Dates: start: 2010
  6. COUMADIN [Concomitant]
     Dosage: UNK
     Dates: start: 2008
  7. ADVAIR [Concomitant]
  8. OXYGEN [Concomitant]
  9. ALDACTONE [Concomitant]
     Dosage: UNK
     Dates: start: 2008
  10. LASIX [Concomitant]
     Dosage: UNK
     Dates: start: 2008
  11. METOLAZONE [Concomitant]
     Dosage: UNK
     Dates: start: 2010
  12. POTASSIUM CHLORIDE [Concomitant]
  13. FERROUS SULFATE [Concomitant]
     Dosage: UNK
     Dates: start: 2010
  14. ACETAMINOPHEN [Concomitant]
     Dosage: UNK
     Dates: start: 2008
  15. DUONEB [Concomitant]
     Dosage: UNK
     Dates: start: 2008
  16. VITAMIN D [Concomitant]
  17. AMBIEN [Concomitant]
     Dosage: UNK
     Dates: start: 2010
  18. VICODIN [Concomitant]
     Dosage: UNK
     Dates: start: 2010

REACTIONS (17)
  - Epistaxis [Unknown]
  - Fluid overload [Recovering/Resolving]
  - Fluid retention [Recovered/Resolved]
  - Respiratory failure [Unknown]
  - Renal failure [Recovered/Resolved]
  - Hypotension [Unknown]
  - Right ventricular failure [Unknown]
  - Nasopharyngitis [Unknown]
  - Dyspnoea [Unknown]
  - Oedema peripheral [Recovering/Resolving]
  - Condition aggravated [Unknown]
  - Cautery to nose [Unknown]
  - Anaemia [Unknown]
  - Thrombocytopenia [Unknown]
  - Joint swelling [Unknown]
  - Device damage [Recovered/Resolved]
  - Hypoxia [Unknown]
